FAERS Safety Report 12156462 (Version 1)
Quarter: 2016Q1

REPORT INFORMATION
  Report Type: Spontaneous
  Country: SG (occurrence: SG)
  Receive Date: 20160307
  Receipt Date: 20160307
  Transmission Date: 20160526
  Serious: Yes (Other)
  Sender: FDA-Public Use
  Company Number: SG-VIIV HEALTHCARE LIMITED-SG2016GSK030587

PATIENT
  Age: 61 Year
  Sex: Male

DRUGS (1)
  1. ABACAVIR. [Suspect]
     Active Substance: ABACAVIR
     Indication: PRODUCT USED FOR UNKNOWN INDICATION

REACTIONS (2)
  - Transaminases increased [Unknown]
  - Rash [Unknown]

NARRATIVE: CASE EVENT DATE: 20160122
